FAERS Safety Report 4507161-4 (Version None)
Quarter: 2005Q1

REPORT INFORMATION
  Report Type: 
  Country: None (occurrence: None)
  Receive Date: 20041025
  Receipt Date: 20040520
  Transmission Date: 20050727
  Serious: Yes (Hospitalization)
  Sender: FDA-Public Use
  Company Number: US-JNJFOC-20040504742

PATIENT
  Age: 61 Year
  Sex: Female

DRUGS (13)
  1. INFLIXIMAB (INFLIXIMAB, RECOMBINANT) LYOPHILIZED POWDER [Suspect]
     Indication: RHEUMATOID ARTHRITIS
     Dosage: INTRAVENOUS
     Route: 042
     Dates: start: 20001115
  2. METHOTREXATE [Concomitant]
  3. COZAAR [Concomitant]
  4. OCUVITE (OCUVITE) [Concomitant]
  5. CELEBREX [Concomitant]
  6. PREMARIN [Concomitant]
  7. PROTONIX [Concomitant]
  8. PLAVIX [Concomitant]
  9. ASPIRIN [Concomitant]
  10. EFFEXOR [Concomitant]
  11. LEVOXYL [Concomitant]
  12. HALCION [Concomitant]
  13. MIRAPEX (PRAMIPREXOLE DIHYDROCHLORIDE) [Concomitant]

REACTIONS (2)
  - CHEST PAIN [None]
  - DIZZINESS [None]
